FAERS Safety Report 6794638-4 (Version None)
Quarter: 2010Q2

REPORT INFORMATION
  Report Type: 
  Country: None (occurrence: None)
  Receive Date: 20100625
  Receipt Date: 20100618
  Transmission Date: 20101027
  Serious: Yes (Hospitalization)
  Sender: FDA-Public Use
  Company Number: US-JNJFOC-20100606233

PATIENT
  Sex: Male
  Weight: 85.73 kg

DRUGS (1)
  1. HALDOL [Suspect]
     Indication: ANXIETY
     Route: 048

REACTIONS (2)
  - DYSPNOEA [None]
  - MUSCLE SPASMS [None]
